FAERS Safety Report 8505836-3 (Version None)
Quarter: 2012Q3

REPORT INFORMATION
  Report Type: 
  Country: None (occurrence: None)
  Receive Date: 20120712
  Receipt Date: 20120704
  Transmission Date: 20120928
  Serious: Yes (Hospitalization, Other)
  Sender: FDA-Public Use
  Company Number: BR-SANOFI-AVENTIS-2012SA047802

PATIENT
  Age: 65 Year
  Sex: Male
  Weight: 90 kg

DRUGS (9)
  1. DIOVAN [Concomitant]
     Indication: HYPERTENSION
     Route: 048
  2. ASPIRIN [Concomitant]
     Indication: ANTICOAGULANT THERAPY
     Route: 048
  3. HUMALOG [Concomitant]
     Dosage: ACCORDING TO GLYCEMIA
  4. METFORMIN HCL [Concomitant]
     Route: 048
  5. LANTUS [Suspect]
     Route: 058
     Dates: start: 20110901
  6. AUTOPEN 24 [Suspect]
     Indication: DEVICE THERAPY
     Dates: start: 20110901
  7. ATORVASTATIN [Concomitant]
     Indication: BLOOD PRESSURE
  8. CLOPIDOGREL [Concomitant]
     Route: 048
  9. NPH INSULIN [Concomitant]

REACTIONS (4)
  - SOMNOLENCE [None]
  - LETHARGY [None]
  - HYPOGLYCAEMIA [None]
  - HERNIA [None]
